FAERS Safety Report 4334341-3 (Version None)
Quarter: 2004Q2

REPORT INFORMATION
  Report Type: 
  Country: None (occurrence: None)
  Receive Date: 20040405
  Receipt Date: 20040326
  Transmission Date: 20050107
  Serious: Yes (Hospitalization)
  Sender: FDA-Public Use
  Company Number: 6007996

PATIENT
  Age: 54 Year
  Sex: Male

DRUGS (6)
  1. GLUCOPHAGE [Suspect]
     Dosage: 2 DOSAGE FORMS (1 DOSAGE FORMS, 2 IN 1 D) ORAL
     Route: 048
     Dates: start: 20000218, end: 20000224
  2. GLYBURIDE [Suspect]
     Indication: DIABETES MELLITUS
     Dosage: 3 DOSAGE FORMS (1 DOSAGE FORMS, 3 IN 1 D) ORAL
     Route: 048
     Dates: start: 20000204, end: 20000217
  3. KETOPROFEN [Suspect]
     Dosage: ORAL
     Route: 048
     Dates: start: 20000208, end: 20000216
  4. GLUCOR (ACARBOSE) [Suspect]
     Dosage: 3 DOSAGE FORMS ORAL
     Route: 048
     Dates: start: 20000208, end: 20000216
  5. DI-ANTALVIC (PARACETAMOL, DEXTROPROPOXYPHENE HYDROCHLORIDE) [Suspect]
     Indication: CERVICAL ROOT PAIN
     Dates: start: 20000131, end: 20000216
  6. CLONAZEPAM [Suspect]
     Indication: CERVICAL ROOT PAIN
     Dates: start: 20000131, end: 20000216

REACTIONS (8)
  - CHOLESTASIS [None]
  - CYTOLYTIC HEPATITIS [None]
  - GLYCOSYLATED HAEMOGLOBIN INCREASED [None]
  - HEPATIC STEATOSIS [None]
  - HEPATITIS [None]
  - HYPERCHOLESTEROLAEMIA [None]
  - HYPERGLYCAEMIA [None]
  - HYPERTRIGLYCERIDAEMIA [None]
